FAERS Safety Report 7477684-7 (Version None)
Quarter: 2011Q2

REPORT INFORMATION
  Report Type: 
  Country: None (occurrence: None)
  Receive Date: 20110513
  Receipt Date: 20110405
  Transmission Date: 20111010
  Serious: Yes (Hospitalization, Other)
  Sender: FDA-Public Use
  Company Number: US-BAYER-201035756NA

PATIENT
  Age: 23 Year
  Sex: Female
  Weight: 95.238 kg

DRUGS (4)
  1. YASMIN [Suspect]
     Indication: PRODUCT USED FOR UNKNOWN INDICATION
     Route: 048
     Dates: start: 20010201, end: 20010101
  2. YASMIN [Suspect]
     Dosage: UNK
     Dates: start: 20010101, end: 20010501
  3. ACETAMINOPHEN [Concomitant]
  4. MOTRIN [Concomitant]

REACTIONS (3)
  - CHEST PAIN [None]
  - CHOLELITHIASIS [None]
  - GALLBLADDER DISORDER [None]
